FAERS Safety Report 10376142 (Version 1)
Quarter: 2014Q3

REPORT INFORMATION
  Report Type: Spontaneous
  Country: US (occurrence: US)
  Receive Date: 20140811
  Receipt Date: 20140811
  Transmission Date: 20150326
  Serious: No
  Sender: FDA-Public Use
  Company Number: US-ASTRAZENECA-2014SE28777

PATIENT
  Age: 64 Year
  Sex: Female
  Weight: 99.8 kg

DRUGS (7)
  1. SIMVISTATIN [Concomitant]
     Active Substance: SIMVASTATIN
     Indication: BLOOD CHOLESTEROL ABNORMAL
     Route: 048
     Dates: start: 2004
  2. ZOLPIDEN [Concomitant]
     Indication: SLEEP DISORDER
     Route: 048
     Dates: start: 2012
  3. METFORMIN [Concomitant]
     Active Substance: METFORMIN HYDROCHLORIDE
     Indication: DIABETES MELLITUS
     Route: 048
     Dates: start: 2012
  4. INDAPAMIDE. [Concomitant]
     Active Substance: INDAPAMIDE
     Indication: SWELLING
     Route: 048
     Dates: start: 1994
  5. ARIMIDEX [Suspect]
     Active Substance: ANASTROZOLE
     Indication: BREAST CANCER
     Route: 048
     Dates: start: 201206
  6. LISINOPRIL. [Suspect]
     Active Substance: LISINOPRIL
     Indication: BLOOD PRESSURE ABNORMAL
     Route: 048
  7. BABY ASA [Concomitant]
     Active Substance: ASPIRIN
     Route: 048

REACTIONS (10)
  - Musculoskeletal stiffness [Unknown]
  - Limb discomfort [Unknown]
  - Insomnia [Unknown]
  - Arthralgia [Unknown]
  - Pain in extremity [Unknown]
  - Hot flush [Unknown]
  - Night sweats [Unknown]
  - Hair growth abnormal [Unknown]
  - Joint lock [Unknown]
  - Alopecia [Unknown]

NARRATIVE: CASE EVENT DATE: 201212
